FAERS Safety Report 17127411 (Version 3)
Quarter: 2020Q2

REPORT INFORMATION
  Report Type: Spontaneous
  Country: DE (occurrence: DE)
  Receive Date: 20191209
  Receipt Date: 20200513
  Transmission Date: 20200713
  Serious: Yes (Death, Life-Threatening, Hospitalization, Other)
  Sender: FDA-Public Use
  Company Number: DE-ACCORD-164194

PATIENT
  Age: 5 Day
  Sex: Female

DRUGS (4)
  1. ETOPOSIDE. [Suspect]
     Active Substance: ETOPOSIDE
     Indication: HYPERLEUKOCYTOSIS
     Dosage: 3 CYCLE
  2. DAUNOXOME [Suspect]
     Active Substance: DAUNORUBICIN CITRATE
     Indication: HYPERLEUKOCYTOSIS
     Dosage: REDUCED BY 50%
  3. RASBURICASE [Concomitant]
     Active Substance: RASBURICASE
  4. CYTARABINE/CYTARABINE HYDROCHLORIDE/CYTARABINE OCFOSFATE [Suspect]
     Active Substance: CYTARABINE
     Indication: HYPERLEUKOCYTOSIS
     Dosage: INCREASE 6 MG/KG 24 H,REDUCED BY 30%?3.3 MG/KG TO 2.6 MG/KG

REACTIONS (8)
  - Venoocclusive disease [Not Recovered/Not Resolved]
  - Epidermolysis [Unknown]
  - Renal failure [Fatal]
  - Haemodynamic instability [Unknown]
  - Cholestasis [Not Recovered/Not Resolved]
  - Hepatic failure [Fatal]
  - Skin toxicity [Unknown]
  - Multiple organ dysfunction syndrome [Fatal]
